FAERS Safety Report 22205928 (Version 1)
Quarter: 2023Q2

REPORT INFORMATION
  Report Type: Spontaneous
  Country: US (occurrence: US)
  Receive Date: 20230413
  Receipt Date: 20230413
  Transmission Date: 20230722
  Serious: No
  Sender: FDA-Public Use
  Company Number: US-BRISTOL-MYERS SQUIBB COMPANY-2023-052183

PATIENT
  Age: 67 Year
  Sex: Female

DRUGS (1)
  1. REVLIMID [Suspect]
     Active Substance: LENALIDOMIDE
     Indication: Plasma cell myeloma
     Route: 048

REACTIONS (8)
  - Headache [Unknown]
  - Anxiety [Unknown]
  - Depression [Unknown]
  - Product dose omission in error [Unknown]
  - Nausea [Unknown]
  - Somnolence [Unknown]
  - Drug intolerance [Unknown]
  - Constipation [Unknown]
